FAERS Safety Report 5377451-4 (Version None)
Quarter: 2007Q3

REPORT INFORMATION
  Report Type: 
  Country: None (occurrence: None)
  Receive Date: 20070703
  Receipt Date: 20070627
  Transmission Date: 20080115
  Serious: Yes (Other)
  Sender: FDA-Public Use
  Company Number: US-JNJFOC-20070606438

PATIENT
  Age: 80 Year
  Sex: Male
  Weight: 72.58 kg

DRUGS (8)
  1. IMODIUM A-D [Suspect]
  2. IMODIUM A-D [Suspect]
     Indication: DIARRHOEA
     Dosage: 2-12 MG PER DAY
  3. PREDNISONE TAB [Suspect]
     Indication: COLITIS ULCERATIVE
  4. GLYBURIDE [Concomitant]
  5. ASACOL [Concomitant]
     Indication: COLITIS ULCERATIVE
  6. HYDROCHLOROTHIAZIDE [Concomitant]
     Indication: HYPERTENSION
  7. VALIUM [Concomitant]
  8. ELAVIL [Concomitant]

REACTIONS (2)
  - BLOOD GLUCOSE INCREASED [None]
  - INCORRECT DOSE ADMINISTERED [None]
